FAERS Safety Report 5226378-7 (Version None)
Quarter: 2007Q1

REPORT INFORMATION
  Report Type: 
  Country: None (occurrence: None)
  Receive Date: 20070201
  Receipt Date: 20070124
  Transmission Date: 20070707
  Serious: Yes (Hospitalization, Other)
  Sender: FDA-Public Use
  Company Number: US-JNJFOC-20070106759

PATIENT
  Sex: Male
  Weight: 40.82 kg

DRUGS (6)
  1. TOPAMAX [Suspect]
     Route: 048
  2. TOPAMAX [Suspect]
     Indication: EPILEPSY
     Route: 048
  3. LAMICTAL [Concomitant]
     Dosage: 30 TABS DAILY
  4. ATIVAN [Concomitant]
     Indication: CONVULSION
  5. DYASTAT [Concomitant]
     Indication: CONVULSION
  6. CLORASAP [Concomitant]
     Indication: CONVULSION

REACTIONS (5)
  - ACCIDENT [None]
  - CONVULSION [None]
  - DIARRHOEA [None]
  - GASTROENTERITIS VIRAL [None]
  - PANCREATITIS [None]
